FAERS Safety Report 8737505 (Version 5)
Quarter: 2013Q4

REPORT INFORMATION
  Report Type: Spontaneous
  Country: US (occurrence: US)
  Receive Date: 20120822
  Receipt Date: 20131106
  Transmission Date: 20140711
  Serious: Yes (Other)
  Sender: FDA-Public Use
  Company Number: US-009507513-1207USA005352

PATIENT
  Age: 57 Year
  Sex: Male

DRUGS (5)
  1. VICTRELIS [Suspect]
     Indication: HEPATITIS C
     Dosage: 800 MG, TID
     Route: 048
     Dates: start: 20120614, end: 20120814
  2. PEGASYS [Suspect]
     Indication: HEPATITIS C
     Dosage: 180 MICROGRAM, QD
     Route: 058
     Dates: start: 20120514, end: 20120814
  3. RIBAPAK [Suspect]
     Dosage: UNK
     Route: 048
     Dates: start: 20120514, end: 20120814
  4. NEXIUM [Concomitant]
  5. ADVIL [Concomitant]

REACTIONS (6)
  - Hepatic failure [Unknown]
  - Jaundice [Unknown]
  - Blood bilirubin abnormal [Unknown]
  - Gastrooesophageal reflux disease [Not Recovered/Not Resolved]
  - Cough [Not Recovered/Not Resolved]
  - Secretion discharge [Not Recovered/Not Resolved]
